FAERS Safety Report 17974938 (Version 1)
Quarter: 2020Q3

REPORT INFORMATION
  Report Type: Spontaneous
  Country: GB (occurrence: GB)
  Receive Date: 20200702
  Receipt Date: 20200702
  Transmission Date: 20201103
  Serious: Yes (Other)
  Sender: FDA-Public Use
  Company Number: GB-TEVA-2020-GB-1793899

PATIENT
  Age: 18 Year
  Sex: Female
  Weight: 49.43 kg

DRUGS (3)
  1. MICROGYNON [Concomitant]
     Active Substance: ETHINYL ESTRADIOL\LEVONORGESTREL ACETATE
  2. MALARONE [Concomitant]
     Active Substance: ATOVAQUONE\PROGUANIL HYDROCHLORIDE
  3. NAPROXEN. [Suspect]
     Active Substance: NAPROXEN
     Indication: NON-CARDIAC CHEST PAIN
     Dosage: 500 MG
     Route: 048
     Dates: start: 20180719, end: 20180728

REACTIONS (2)
  - Oral pain [Unknown]
  - Mouth ulceration [Recovered/Resolved]

NARRATIVE: CASE EVENT DATE: 20180721
